FAERS Safety Report 9135650 (Version 1)
Quarter: 2013Q1

REPORT INFORMATION
  Report Type: Spontaneous
  Country: US (occurrence: US)
  Receive Date: 20130219
  Receipt Date: 20130219
  Transmission Date: 20140127
  Serious: No
  Sender: FDA-Public Use
  Company Number: US-BRISTOL-MYERS SQUIBB COMPANY-17110248

PATIENT
  Age: 67 Year
  Sex: Female
  Weight: 51.25 kg

DRUGS (1)
  1. ORENCIA [Suspect]
     Indication: RHEUMATOID ARTHRITIS
     Dosage: LAST INF ON 6NOV12?Q MONTH
     Route: 042
     Dates: start: 20121106, end: 20121106

REACTIONS (1)
  - Medication error [Unknown]
